FAERS Safety Report 5600447-1 (Version None)
Quarter: 2008Q1

REPORT INFORMATION
  Report Type: 
  Country: None (occurrence: None)
  Receive Date: 20080118
  Receipt Date: 20080114
  Transmission Date: 20080703
  Serious: Yes (Hospitalization)
  Sender: FDA-Public Use
  Company Number: 2008SP000377

PATIENT
  Age: 50 Year
  Sex: Male
  Weight: 106.6 kg

DRUGS (11)
  1. TEMOZOLOMIDE [Suspect]
     Indication: GLIOBLASTOMA MULTIFORME
     Dosage: 165 MG; QD; PO
     Route: 048
     Dates: start: 20070725, end: 20070831
  2. DECADRON [Concomitant]
  3. KEPPRA [Concomitant]
  4. PRILOSEC [Concomitant]
  5. CARDIZEM [Concomitant]
  6. WELLBUTRIN [Concomitant]
  7. XANAX [Concomitant]
  8. VICODIN [Concomitant]
  9. LASIX [Concomitant]
  10. FOLIC ACID [Concomitant]
  11. LYRICA [Concomitant]

REACTIONS (11)
  - CARDIAC FAILURE CONGESTIVE [None]
  - DYSPNOEA [None]
  - HYPERGLYCAEMIA [None]
  - HYPOKALAEMIA [None]
  - HYPONATRAEMIA [None]
  - LYMPHOPENIA [None]
  - METABOLIC ALKALOSIS [None]
  - MUSCULOSKELETAL CHEST PAIN [None]
  - NEUTROPHIL COUNT DECREASED [None]
  - PLATELET COUNT DECREASED [None]
  - WHITE BLOOD CELL COUNT DECREASED [None]
